FAERS Safety Report 7814284-0 (Version None)
Quarter: 2011Q4

REPORT INFORMATION
  Report Type: 
  Country: None (occurrence: None)
  Receive Date: 20111012
  Receipt Date: 20110928
  Transmission Date: 20120403
  Serious: Yes (Life-Threatening, Hospitalization, Other)
  Sender: FDA-Public Use
  Company Number: 2011P1009178

PATIENT
  Age: 61 Year
  Sex: Female

DRUGS (8)
  1. ROCURONIUM BROMIDE [Suspect]
     Indication: NEUROMUSCULAR BLOCKADE
     Dosage: 40 MG; IV   : 10 MG; IV
     Route: 042
     Dates: start: 20110915
  2. ROCURONIUM BROMIDE [Suspect]
     Indication: NEUROMUSCULAR BLOCKADE
     Dosage: 40 MG; IV   : 10 MG; IV
     Route: 042
     Dates: start: 20110915
  3. FENTANYL [Suspect]
     Indication: INDUCTION OF ANAESTHESIA
     Dates: start: 20110915
  4. PROPOFOL [Suspect]
     Indication: INDUCTION OF ANAESTHESIA
     Dates: start: 20110915
  5. AMOXICILLIN AND CLAVULANATE POTASSIUM [Suspect]
     Indication: PROPHYLAXIS
     Dosage: 1.2 GRAMS; IV
     Route: 042
     Dates: start: 20110915
  6. MORPHINE [Concomitant]
  7. IBUPROFEN [Concomitant]
  8. ACETAMINOPHEN [Concomitant]

REACTIONS (4)
  - CARDIAC ARREST [None]
  - TACHYCARDIA [None]
  - HYPOVENTILATION [None]
  - ANAPHYLACTIC REACTION [None]
